FAERS Safety Report 6679283-3 (Version None)
Quarter: 2010Q2

REPORT INFORMATION
  Report Type: 
  Country: None (occurrence: None)
  Receive Date: 20100413
  Receipt Date: 20100331
  Transmission Date: 20101027
  Serious: No
  Sender: FDA-Public Use
  Company Number: US-B.I. PHARMACEUTICALS,INC./RIDGEFIELD-2010-BP-02755BP

PATIENT
  Age: 70 Year
  Sex: Female
  Weight: 77.5 kg

DRUGS (12)
  1. SPIRIVA [Suspect]
     Indication: CHRONIC OBSTRUCTIVE PULMONARY DISEASE
     Dosage: 18 MCG
     Dates: start: 20090409, end: 20100115
  2. SPIRIVA [Suspect]
     Route: 055
     Dates: start: 20100115, end: 20100304
  3. BONIVA [Concomitant]
     Dates: start: 20090402
  4. MICARDIS [Concomitant]
     Dates: start: 20090506
  5. LIPITOR [Concomitant]
     Dosage: 20 MG
  6. ALLEGRA [Concomitant]
     Dosage: 180 MG
     Dates: start: 20090217
  7. QVAR 40 [Concomitant]
     Dates: start: 20090409
  8. FLONASE [Concomitant]
     Dates: start: 20090506
  9. SUPPLEMENTS [Concomitant]
  10. CALCIUM [Concomitant]
  11. VIT D [Concomitant]
  12. VIT [Concomitant]

REACTIONS (5)
  - URETHRITIS [None]
  - URINARY HESITATION [None]
  - URINARY RETENTION [None]
  - URINARY TRACT INFECTION [None]
  - URINARY TRACT PAIN [None]
